FAERS Safety Report 8203229-X (Version None)
Quarter: 2012Q1

REPORT INFORMATION
  Report Type: 
  Country: None (occurrence: None)
  Receive Date: 20120312
  Receipt Date: 20120307
  Transmission Date: 20120608
  Serious: Yes (Other)
  Sender: FDA-Public Use
  Company Number: US-ROCHE-778642

PATIENT
  Sex: Male
  Weight: 77.18 kg

DRUGS (3)
  1. ACCUTANE [Suspect]
     Indication: ACNE
     Route: 065
  2. ACETAMINOPHEN [Concomitant]
  3. NEXIUM [Concomitant]

REACTIONS (9)
  - INTESTINAL HAEMORRHAGE [None]
  - DEPRESSION [None]
  - COLITIS ULCERATIVE [None]
  - ARTHRITIS [None]
  - SUICIDAL IDEATION [None]
  - INFLAMMATORY BOWEL DISEASE [None]
  - CROHN'S DISEASE [None]
  - INTESTINAL OBSTRUCTION [None]
  - IRRITABLE BOWEL SYNDROME [None]
